FAERS Safety Report 14598289 (Version 1)
Quarter: 2018Q1

REPORT INFORMATION
  Report Type: Spontaneous
  Country: US (occurrence: US)
  Receive Date: 20180305
  Receipt Date: 20180305
  Transmission Date: 20180509
  Serious: Yes (Hospitalization, Other)
  Sender: FDA-Public Use
  Company Number: US-BRISTOL-MYERS SQUIBB COMPANY-BMS-2018-015798

PATIENT
  Age: 11 Year
  Sex: Male

DRUGS (5)
  1. DIDANOSINE. [Concomitant]
     Active Substance: DIDANOSINE
     Indication: PERINATAL HIV INFECTION
     Route: 065
  2. EPZICOM [Concomitant]
     Active Substance: ABACAVIR SULFATE\LAMIVUDINE
     Indication: PERINATAL HIV INFECTION
     Dosage: UNK UNK, QD
     Route: 065
  3. TRIAMCINOLONE ACETONIDE. [Suspect]
     Active Substance: TRIAMCINOLONE ACETONIDE
     Indication: ANALGESIC THERAPY
     Route: 014
  4. RITONAVIR. [Suspect]
     Active Substance: RITONAVIR
     Indication: PERINATAL HIV INFECTION
     Route: 065
  5. ABACAVIR. [Concomitant]
     Active Substance: ABACAVIR
     Indication: PERINATAL HIV INFECTION
     Dosage: UNK UNK, BID
     Route: 065

REACTIONS (2)
  - Pituitary-dependent Cushing^s syndrome [Recovering/Resolving]
  - Labelled drug-drug interaction medication error [Recovering/Resolving]
